FAERS Safety Report 21737612 (Version 1)
Quarter: 2022Q4

REPORT INFORMATION
  Report Type: Spontaneous
  Country: US (occurrence: US)
  Receive Date: 20221216
  Receipt Date: 20221216
  Transmission Date: 20230113
  Serious: No
  Sender: FDA-Public Use
  Company Number: US-SPECGX-T202200049

PATIENT
  Sex: Female

DRUGS (1)
  1. FENTANYL TRANSDERMAL SYSTEM [Suspect]
     Active Substance: FENTANYL
     Indication: Pain
     Dosage: 50 MCG/HR
     Route: 062

REACTIONS (5)
  - Pain [Unknown]
  - Malaise [Unknown]
  - Application site irritation [Unknown]
  - Application site pain [Unknown]
  - Application site swelling [Unknown]
